FAERS Safety Report 16389208 (Version 1)
Quarter: 2019Q3

REPORT INFORMATION
  Report Type: Spontaneous
  Country: US (occurrence: US)
  Receive Date: 20190603
  Receipt Date: 20190603
  Transmission Date: 20191004
  Serious: Yes (Other)
  Sender: FDA-Public Use
  Company Number: None

PATIENT
  Age: 65 Year
  Sex: Male
  Weight: 93.6 kg

DRUGS (1)
  1. TRULICITY [Suspect]
     Active Substance: DULAGLUTIDE
     Indication: TYPE 2 DIABETES MELLITUS
     Dosage: ?          QUANTITY:3 INJECTION(S);OTHER FREQUENCY:ONCE A WEEK;OTHER ROUTE:INJECTED SUBCUTANEOUSLINTO FATTY TISSUE.?

REACTIONS (2)
  - Injection site pain [None]
  - Needle issue [None]

NARRATIVE: CASE EVENT DATE: 20190104
